FAERS Safety Report 23066834 (Version 2)
Quarter: 2023Q4

REPORT INFORMATION
  Report Type: Spontaneous
  Country: JP (occurrence: JP)
  Receive Date: 20231016
  Receipt Date: 20231211
  Transmission Date: 20240110
  Serious: Yes (Death, Other)
  Sender: FDA-Public Use
  Company Number: JP-002147023-NVSJ2023JP014946

PATIENT
  Age: 80 Year
  Sex: Male

DRUGS (1)
  1. ENTRESTO [Suspect]
     Active Substance: SACUBITRIL\VALSARTAN
     Indication: Left ventricular failure
     Dosage: UNK
     Route: 048

REACTIONS (4)
  - Cardio-respiratory arrest [Fatal]
  - Acute myocardial infarction [Fatal]
  - Cardiac failure [Fatal]
  - Hypotension [Unknown]
